FAERS Safety Report 16306508 (Version 3)
Quarter: 2022Q2

REPORT INFORMATION
  Report Type: Spontaneous
  Country: US (occurrence: None)
  Receive Date: 20190513
  Receipt Date: 20220401
  Transmission Date: 20220721
  Serious: Yes (Hospitalization, Other)
  Sender: FDA-Public Use
  Company Number: 2019SE63633

PATIENT
  Age: 12099 Day
  Sex: Male
  Weight: 90.7 kg

DRUGS (31)
  1. PRILOSEC [Suspect]
     Active Substance: OMEPRAZOLE MAGNESIUM
     Indication: Gastrooesophageal reflux disease
     Route: 048
     Dates: start: 200001, end: 200212
  2. PRILOSEC [Suspect]
     Active Substance: OMEPRAZOLE MAGNESIUM
     Indication: Gastrooesophageal reflux disease
     Dosage: GENERIC
     Route: 065
     Dates: start: 2002, end: 2019
  3. PRILOSEC [Suspect]
     Active Substance: OMEPRAZOLE MAGNESIUM
     Indication: Gastrooesophageal reflux disease
     Route: 048
     Dates: start: 1999, end: 2019
  4. PRILOSEC OTC [Suspect]
     Active Substance: OMEPRAZOLE MAGNESIUM
     Indication: Gastrooesophageal reflux disease
     Route: 048
     Dates: start: 200001, end: 200212
  5. PRILOSEC OTC [Suspect]
     Active Substance: OMEPRAZOLE MAGNESIUM
     Indication: Gastrooesophageal reflux disease
     Route: 048
     Dates: start: 200001, end: 200212
  6. PRILOSEC OTC [Suspect]
     Active Substance: OMEPRAZOLE MAGNESIUM
     Indication: Gastrooesophageal reflux disease
     Route: 048
     Dates: start: 2003, end: 2019
  7. PRILOSEC OTC [Suspect]
     Active Substance: OMEPRAZOLE MAGNESIUM
     Indication: Gastrooesophageal reflux disease
     Route: 048
     Dates: start: 2003, end: 2019
  8. PREVACID [Suspect]
     Active Substance: LANSOPRAZOLE
     Indication: Gastrooesophageal reflux disease
     Route: 065
     Dates: start: 200001, end: 200212
  9. PREVACID [Suspect]
     Active Substance: LANSOPRAZOLE
     Indication: Gastrooesophageal reflux disease
     Route: 065
     Dates: start: 1999, end: 2019
  10. TYLENOL [Concomitant]
     Active Substance: ACETAMINOPHEN
     Dates: start: 1997
  11. PREDNISONE [Concomitant]
     Active Substance: PREDNISONE
     Dates: start: 1997
  12. CEPHALEXIN [Concomitant]
     Active Substance: CEPHALEXIN
     Dates: start: 1997
  13. NAPROXEN [Concomitant]
     Active Substance: NAPROXEN
     Dates: start: 1997
  14. OXYCODONE [Concomitant]
     Active Substance: OXYCODONE
     Dates: start: 1997
  15. GABAPENTIN [Concomitant]
     Active Substance: GABAPENTIN
     Dates: start: 1997
  16. DOXAZOSIN [Concomitant]
     Active Substance: DOXAZOSIN MESYLATE
     Dates: start: 1997
  17. FUROSEMIDE [Concomitant]
     Active Substance: FUROSEMIDE
     Dates: start: 1997
  18. AMLODIPINE [Concomitant]
     Active Substance: AMLODIPINE BESYLATE
     Dates: start: 1997
  19. SEVELAMER [Concomitant]
     Active Substance: SEVELAMER
     Dates: start: 1997
  20. CARVEDILOL [Concomitant]
     Active Substance: CARVEDILOL
  21. LISINOPRIL [Concomitant]
     Active Substance: LISINOPRIL
  22. PROTONIX [Concomitant]
     Active Substance: PANTOPRAZOLE SODIUM
     Dates: end: 20180218
  23. POTASSIUM CHLORIDE [Concomitant]
     Active Substance: POTASSIUM CHLORIDE
  24. VISTARIL [Concomitant]
     Active Substance: HYDROXYZINE PAMOATE
  25. LIPITOR [Concomitant]
     Active Substance: ATORVASTATIN CALCIUM
  26. METOLAZONE [Concomitant]
     Active Substance: METOLAZONE
  27. MYCOPHENOLATE MOFETIL [Concomitant]
     Active Substance: MYCOPHENOLATE MOFETIL
  28. CARAFATE [Concomitant]
     Active Substance: SUCRALFATE
  29. TACROLIMUS [Concomitant]
     Active Substance: TACROLIMUS
  30. LEVOFLOXACIN [Concomitant]
     Active Substance: LEVOFLOXACIN
  31. LOSARTAN [Concomitant]
     Active Substance: LOSARTAN

REACTIONS (5)
  - Chronic kidney disease [Unknown]
  - End stage renal disease [Unknown]
  - Renal failure [Unknown]
  - Hyperkalaemia [Unknown]
  - Skin lesion [Unknown]

NARRATIVE: CASE EVENT DATE: 20160208
